FAERS Safety Report 8030976-5 (Version None)
Quarter: 2012Q1

REPORT INFORMATION
  Report Type: 
  Country: None (occurrence: None)
  Receive Date: 20120109
  Receipt Date: 20111230
  Transmission Date: 20120608
  Serious: Yes (Hospitalization)
  Sender: FDA-Public Use
  Company Number: FR-JNJFOC-20120102118

PATIENT
  Sex: Male
  Weight: 2.67 kg

DRUGS (2)
  1. TRAMADOL HCL [Suspect]
     Indication: FOETAL EXPOSURE DURING PREGNANCY
     Route: 064
     Dates: start: 20100404, end: 20100504
  2. ACETAMINOPHEN [Concomitant]
     Indication: FOETAL EXPOSURE DURING PREGNANCY
     Route: 064
     Dates: start: 20090101, end: 20100403

REACTIONS (3)
  - TREMOR [None]
  - HYPOTONIA NEONATAL [None]
  - FOETAL EXPOSURE DURING PREGNANCY [None]
